FAERS Safety Report 15879819 (Version 1)
Quarter: 2019Q1

REPORT INFORMATION
  Report Type: Report from Study
  Country: DE (occurrence: DE)
  Receive Date: 20190128
  Receipt Date: 20190128
  Transmission Date: 20190417
  Serious: Yes (Other)
  Sender: FDA-Public Use
  Company Number: DE-ROCHE-2251412

PATIENT

DRUGS (2)
  1. RITUXIMAB. [Suspect]
     Active Substance: RITUXIMAB
     Dosage: MAITAINENCE THERAPY
     Route: 042
  2. RITUXIMAB. [Suspect]
     Active Substance: RITUXIMAB
     Indication: CHRONIC LYMPHOCYTIC LEUKAEMIA
     Dosage: 4 TIMES WITHIN 4 WEEKS; INDUCTION THERAPY
     Route: 042

REACTIONS (4)
  - Insomnia [Unknown]
  - Pneumonia [Unknown]
  - Cholecystitis [Unknown]
  - Hypotension [Unknown]
